APPROVED DRUG PRODUCT: LAMOTRIGINE
Active Ingredient: LAMOTRIGINE
Strength: 200MG
Dosage Form/Route: TABLET, EXTENDED RELEASE;ORAL
Application: A203370 | Product #004
Applicant: TORRENT PHARMACEUTICALS LTD
Approved: Dec 23, 2013 | RLD: No | RS: No | Type: DISCN